FAERS Safety Report 18332743 (Version 1)
Quarter: 2020Q4

REPORT INFORMATION
  Report Type: Spontaneous
  Country: IT (occurrence: IT)
  Receive Date: 20201001
  Receipt Date: 20201001
  Transmission Date: 20210113
  Serious: Yes (Other)
  Sender: FDA-Public Use
  Company Number: IT-SUN PHARMACEUTICAL INDUSTRIES LTD-2020R1-262642

PATIENT
  Age: 25 Year
  Sex: Female

DRUGS (5)
  1. METHOTREXATE. [Suspect]
     Active Substance: METHOTREXATE
     Indication: CHEMOTHERAPY
     Dosage: UNK
     Route: 065
  2. THIOTEPA. [Suspect]
     Active Substance: THIOTEPA
     Indication: CHEMOTHERAPY
     Dosage: UNK
     Route: 065
  3. CARMUSTINE. [Suspect]
     Active Substance: CARMUSTINE
     Indication: CHEMOTHERAPY
     Dosage: UNK
     Route: 065
  4. RITUXIMAB. [Suspect]
     Active Substance: RITUXIMAB
     Indication: CHEMOTHERAPY
     Dosage: UNK
     Route: 065
  5. CYTARABINE. [Suspect]
     Active Substance: CYTARABINE
     Indication: CHEMOTHERAPY
     Dosage: 2900 MILLIGRAM
     Route: 065

REACTIONS (7)
  - Fungal infection [Unknown]
  - Neutropenia [Recovered/Resolved]
  - Anaemia [Unknown]
  - Mucosal inflammation [Unknown]
  - Herpes simplex reactivation [Unknown]
  - Thrombocytopenia [Unknown]
  - Dry eye [Unknown]
